FAERS Safety Report 7415020-2 (Version None)
Quarter: 2011Q2

REPORT INFORMATION
  Report Type: 
  Country: None (occurrence: None)
  Receive Date: 20110414
  Receipt Date: 20110405
  Transmission Date: 20111010
  Serious: Yes (Other)
  Sender: FDA-Public Use
  Company Number: US-ROCHE-752626

PATIENT
  Sex: Female
  Weight: 64.4 kg

DRUGS (4)
  1. ACCUTANE [Suspect]
     Dosage: 40 MG - 80 MG.
     Route: 048
     Dates: start: 20021003, end: 20030115
  2. IBUPROFEN [Concomitant]
  3. ACCUTANE [Suspect]
     Route: 048
     Dates: start: 19970101, end: 19970801
  4. ZOCOR [Concomitant]

REACTIONS (9)
  - BLOOD CHOLESTEROL INCREASED [None]
  - CROHN'S DISEASE [None]
  - ARTHROPATHY [None]
  - COLITIS [None]
  - ARTHRITIS [None]
  - LIP DRY [None]
  - IRRITABLE BOWEL SYNDROME [None]
  - HAEMORRHOIDS [None]
  - INFLAMMATORY BOWEL DISEASE [None]
